FAERS Safety Report 24097891 (Version 1)
Quarter: 2024Q3

REPORT INFORMATION
  Report Type: Spontaneous
  Country: GR (occurrence: GR)
  Receive Date: 20240716
  Receipt Date: 20240716
  Transmission Date: 20241016
  Serious: Yes (Other)
  Sender: MYLAN
  Company Number: None

PATIENT
  Age: 70 Year
  Sex: Female
  Weight: 85 kg

DRUGS (5)
  1. EZETIMIBE [Suspect]
     Active Substance: EZETIMIBE
     Indication: Cerebrovascular accident
     Dosage: 1 DOSAGE FORM, QD
     Route: 048
     Dates: start: 20240312, end: 20240618
  2. ROSUVASTATIN [Suspect]
     Active Substance: ROSUVASTATIN
     Indication: Cerebrovascular accident
     Dosage: 1 DOSAGE FORM, QD
     Route: 048
     Dates: start: 20240312, end: 20240618
  3. ATORVASTATIN [Suspect]
     Active Substance: ATORVASTATIN
     Indication: Cerebrovascular accident
     Dosage: 1 DOSAGE FORM, QD
     Route: 048
     Dates: start: 20240312, end: 20240618
  4. SIMVASTATIN [Suspect]
     Active Substance: SIMVASTATIN
     Indication: Cerebrovascular accident
     Dosage: 1 DOSAGE FORM, QD
     Route: 048
     Dates: start: 20240312, end: 20240618
  5. PITAVASTATIN [Suspect]
     Active Substance: PITAVASTATIN
     Indication: Cerebrovascular accident
     Dosage: 1 DOSAGE FORM, QD
     Route: 048
     Dates: start: 20240312, end: 20240618

REACTIONS (2)
  - Face oedema [Recovering/Resolving]
  - Myalgia [Recovering/Resolving]

NARRATIVE: CASE EVENT DATE: 20240429
